FAERS Safety Report 12069205 (Version 1)
Quarter: 2016Q1

REPORT INFORMATION
  Report Type: Spontaneous
  Country: US (occurrence: US)
  Receive Date: 20160211
  Receipt Date: 20160211
  Transmission Date: 20160526
  Serious: Yes (Congenital Anomaly, Other)
  Sender: FDA-Public Use
  Company Number: US-APOTEX-2016AP006480

PATIENT
  Sex: Female
  Weight: 3 kg

DRUGS (5)
  1. PAXIL [Suspect]
     Active Substance: PAROXETINE HYDROCHLORIDE
     Dosage: RESTARTED IN 7TH MONTH OF GESTATION
     Route: 064
  2. INSULIN [Concomitant]
     Active Substance: INSULIN NOS
     Indication: BLOOD GLUCOSE ABNORMAL
     Route: 064
  3. PAXIL [Suspect]
     Active Substance: PAROXETINE HYDROCHLORIDE
     Indication: DEPRESSION
     Dosage: STOPPED IN 4TH MONTH OF GESTATION
     Route: 064
  4. ZYPREXA [Concomitant]
     Active Substance: OLANZAPINE
     Indication: SCHIZOPHRENIA
     Dosage: STOPPED AT 4TH MONTH OF GESTATION
     Route: 064
  5. ZYPREXA [Concomitant]
     Active Substance: OLANZAPINE
     Dosage: RESTARTED IN 7TH MONTH OF GESTATION

REACTIONS (8)
  - Single functional kidney [Unknown]
  - Limb hypoplasia congenital [Unknown]
  - Atrial septal defect [Unknown]
  - Cleft lip and palate [Recovering/Resolving]
  - Foetal exposure during pregnancy [Unknown]
  - Silver-Russell syndrome [Unknown]
  - Cardiac murmur [Unknown]
  - Accessory auricle [Unknown]

NARRATIVE: CASE EVENT DATE: 20010209
